FAERS Safety Report 8739874 (Version 2)
Quarter: 2012Q4

REPORT INFORMATION
  Report Type: 
  Country: BR (occurrence: BR)
  Receive Date: 20120823
  Receipt Date: 20121101
  Transmission Date: 20130627
  Serious: Yes (Hospitalization)
  Sender: FDA-Public Use
  Company Number: BR-ASTRAZENECA-2012SE58115

PATIENT
  Age: 74 Year
  Sex: Male

DRUGS (3)
  1. SELOZOK [Suspect]
     Route: 048
     Dates: start: 201204
  2. CRESTOR [Suspect]
     Route: 048
     Dates: start: 201204
  3. BRILINTA [Suspect]
     Route: 048
     Dates: start: 201204

REACTIONS (2)
  - Coronary artery occlusion [Recovered/Resolved]
  - Adverse event [Recovered/Resolved]
